FAERS Safety Report 11261146 (Version 1)
Quarter: 2015Q3

REPORT INFORMATION
  Report Type: Spontaneous
  Country: US (occurrence: US)
  Receive Date: 20150710
  Receipt Date: 20150710
  Transmission Date: 20151125
  Serious: No
  Sender: FDA-Public Use
  Company Number: US-PURDUE-USA-2014-0119901

PATIENT
  Age: 34 Year
  Sex: Female

DRUGS (2)
  1. BUTRANS [Suspect]
     Active Substance: BUPRENORPHINE
     Indication: BACK PAIN
     Dosage: 7.5 MCG/HR, WEEKLY
     Route: 062
     Dates: start: 20141031, end: 20141114
  2. BUTRANS [Suspect]
     Active Substance: BUPRENORPHINE
     Indication: NECK PAIN

REACTIONS (2)
  - Nausea [Recovered/Resolved]
  - Drug effect increased [Unknown]

NARRATIVE: CASE EVENT DATE: 20141102
